FAERS Safety Report 6703838-0 (Version None)
Quarter: 2010Q2

REPORT INFORMATION
  Report Type: 
  Country: None (occurrence: None)
  Receive Date: 20100430
  Receipt Date: 20100420
  Transmission Date: 20101027
  Serious: Yes (Other)
  Sender: FDA-Public Use
  Company Number: US-PFIZER INC-2010050681

PATIENT
  Sex: Male

DRUGS (3)
  1. GEODON [Suspect]
     Dosage: UNK
  2. LISDEXAMFETAMINE DIMESYLATE [Suspect]
     Dosage: UNK
  3. SEROQUEL [Concomitant]
     Dosage: UNK

REACTIONS (6)
  - AGGRESSION [None]
  - AGITATION [None]
  - ANXIETY [None]
  - CONFUSIONAL STATE [None]
  - HEART RATE IRREGULAR [None]
  - PANIC ATTACK [None]
